FAERS Safety Report 4862819-2 (Version None)
Quarter: 2005Q4

REPORT INFORMATION
  Report Type: 
  Country: None (occurrence: None)
  Receive Date: 20051219
  Receipt Date: 20051207
  Transmission Date: 20060501
  Serious: Yes (Other)
  Sender: FDA-Public Use
  Company Number: 2005164988

PATIENT
  Age: 31 Year
  Sex: Male

DRUGS (3)
  1. PSEUDOEPHEDRINE HCL [Suspect]
     Dosage: 10-20 TABLETS DAILY, ORAL
     Route: 048
  2. GUAIFENESIN (GUAIFENESIN) [Suspect]
  3. DRUG, UNSPECIFIED (DRUG, UNSPECIFIED) [Suspect]

REACTIONS (4)
  - DISEASE RECURRENCE [None]
  - NEPHROLITHIASIS [None]
  - OVERDOSE [None]
  - PYELOGRAM RETROGRADE ABNORMAL [None]
